FAERS Safety Report 5352094-7 (Version None)
Quarter: 2007Q2

REPORT INFORMATION
  Report Type: 
  Country: None (occurrence: None)
  Receive Date: 20070606
  Receipt Date: 20070523
  Transmission Date: 20071010
  Serious: Yes (Other)
  Sender: FDA-Public Use
  Company Number: 2007AD000053

PATIENT
  Age: 60 Year
  Sex: Male
  Weight: 98.0223 kg

DRUGS (6)
  1. CEPHALEXIN [Suspect]
     Indication: URINARY TRACT INFECTION
     Dosage: 1 DF; TID; PO
     Route: 048
     Dates: start: 20070429, end: 20070504
  2. CODEINE PHOSPHATE [Concomitant]
  3. DUTASTERIDE [Concomitant]
  4. NIQUITIN /01033302/ [Concomitant]
  5. NITROFURANTOIN [Concomitant]
  6. TAMSULOSIN HCL [Concomitant]

REACTIONS (7)
  - GAIT DISTURBANCE [None]
  - HEADACHE [None]
  - JOINT SWELLING [None]
  - OEDEMA PERIPHERAL [None]
  - PAIN [None]
  - PAIN IN EXTREMITY [None]
  - RASH ERYTHEMATOUS [None]
